FAERS Safety Report 10036354 (Version 2)
Quarter: 2014Q1

REPORT INFORMATION
  Report Type: Spontaneous
  Country: US (occurrence: US)
  Receive Date: 20140325
  Receipt Date: 20140325
  Transmission Date: 20141002
  Serious: Yes (Other)
  Sender: FDA-Public Use
  Company Number: US-GE HEALTHCARE MEDICAL DIAGNOSTICS-OSCN-PR-0805S-0321

PATIENT
  Age: 69 Year
  Sex: Female

DRUGS (5)
  1. OMNISCAN [Suspect]
     Indication: HYPERTENSION
     Route: 042
     Dates: start: 20060221, end: 20060221
  2. OMNISCAN [Suspect]
     Indication: RENAL ARTERY STENOSIS
     Route: 042
     Dates: start: 20051213, end: 20051213
  3. OMNISCAN [Suspect]
     Indication: COMPLICATIONS OF TRANSPLANTED KIDNEY
     Route: 042
     Dates: start: 20051219, end: 20051219
  4. OMNISCAN [Suspect]
     Indication: FISTULA
     Route: 042
     Dates: start: 20051221, end: 20051221
  5. PROHANCE [Suspect]
     Indication: PRODUCT USED FOR UNKNOWN INDICATION
     Route: 042
     Dates: start: 19980925, end: 19980925

REACTIONS (1)
  - Nephrogenic systemic fibrosis [Not Recovered/Not Resolved]
